FAERS Safety Report 13672317 (Version 5)
Quarter: 2019Q3

REPORT INFORMATION
  Report Type: Report from Study
  Country: US (occurrence: MX)
  Receive Date: 20170620
  Receipt Date: 20190822
  Transmission Date: 20191004
  Serious: Yes (Death, Life-Threatening, Other)
  Sender: FDA-Public Use
  Company Number: US-SUNOVION-2017SUN002556

PATIENT
  Age: 90 Year
  Sex: Male
  Weight: 62 kg

DRUGS (21)
  1. FENITOINA [Concomitant]
     Active Substance: PHENYTOIN
     Indication: PRODUCT USED FOR UNKNOWN INDICATION
     Route: 065
  2. MONTELUKAST [Concomitant]
     Active Substance: MONTELUKAST SODIUM
     Indication: CHRONIC OBSTRUCTIVE PULMONARY DISEASE
  3. VERAPAMIL [Concomitant]
     Active Substance: VERAPAMIL HYDROCHLORIDE
     Indication: PRODUCT USED FOR UNKNOWN INDICATION
     Route: 065
  4. MONTELUKAST [Concomitant]
     Active Substance: MONTELUKAST SODIUM
     Indication: LUNG DISORDER
     Dosage: 1 DF, QD (10 YEARS AGO)
     Route: 048
     Dates: end: 20190709
  5. FLUTICASONE. [Concomitant]
     Active Substance: FLUTICASONE
     Indication: COUGH
  6. FLUTICASONE. [Concomitant]
     Active Substance: FLUTICASONE
     Indication: CHRONIC OBSTRUCTIVE PULMONARY DISEASE
  7. COMBIVENT [Concomitant]
     Active Substance: ALBUTEROL SULFATE\IPRATROPIUM BROMIDE
     Indication: BRONCHIAL DISORDER
     Dosage: UNK
  8. CENTRUM [Concomitant]
     Active Substance: VITAMINS
     Indication: PRODUCT USED FOR UNKNOWN INDICATION
     Route: 065
  9. ASPARIN [Concomitant]
     Indication: MICROEMBOLISM
     Dosage: 1 DF, QD (2 YEARS AGO)
     Route: 048
  10. COMBIVENT [Concomitant]
     Active Substance: ALBUTEROL SULFATE\IPRATROPIUM BROMIDE
     Indication: COUGH
     Dosage: 2 DF, AS NECESSARY PRN (8YEARS AGO)
     Route: 055
     Dates: end: 20190709
  11. COMBIVENT [Concomitant]
     Active Substance: ALBUTEROL SULFATE\IPRATROPIUM BROMIDE
     Indication: CHRONIC OBSTRUCTIVE PULMONARY DISEASE
  12. CLONAZEPAM. [Concomitant]
     Active Substance: CLONAZEPAM
     Indication: EPILEPSY
     Dosage: 1 DF UNK (SINCE 17 YEARS OLD)
     Route: 048
     Dates: end: 20190709
  13. DEXAMETHASONE. [Concomitant]
     Active Substance: DEXAMETHASONE
     Indication: PRODUCT USED FOR UNKNOWN INDICATION
     Dosage: 500 MG PRN (STARTED 8 YEARS AGO)
     Route: 030
     Dates: end: 20190709
  14. ENSURE [Concomitant]
     Active Substance: AMINO ACIDS\DEXTROSE\ELECTROLYTES NOS\SOYBEAN OIL\VITAMINS
     Indication: VITAMIN SUPPLEMENTATION
     Dosage: 1 DF, QD (2 YEARS AGO)
     Route: 048
     Dates: end: 20190709
  15. INDACATEROL [Suspect]
     Active Substance: INDACATEROL
     Dosage: 150 ?G, QD (IN THE AFTERNOON, 4 YEARS AGO APPROXIMATELY)
     Route: 065
     Dates: start: 2013, end: 20190709
  16. SPIRIVA [Concomitant]
     Active Substance: TIOTROPIUM BROMIDE MONOHYDRATE
     Indication: CHRONIC OBSTRUCTIVE PULMONARY DISEASE
     Dosage: 1 DF, QD (STARTED 10 YEARS AGO)
     Route: 055
     Dates: end: 20190709
  17. FLUTICASONE. [Concomitant]
     Active Substance: FLUTICASONE
     Indication: BRONCHIAL DISORDER
     Dosage: 2 DF, PRN (8 YEARS AGO)
     Route: 055
     Dates: end: 20190709
  18. PHENYTOIN. [Concomitant]
     Active Substance: PHENYTOIN
     Indication: EPILEPSY
     Dosage: 1 DF, UNK (SINCE SHE WAS 17 YEARS OLD)
     Route: 048
     Dates: end: 20190709
  19. INDACATEROL [Suspect]
     Active Substance: INDACATEROL
     Indication: CHRONIC OBSTRUCTIVE PULMONARY DISEASE
     Dosage: 150 ?G, QD (7 YEARS AGO)
     Route: 055
  20. ALIN [Concomitant]
     Indication: PRODUCT USED FOR UNKNOWN INDICATION
     Dosage: UNK, AS NECESSARY PRN (STARTED 8 YEARS AGO)
     Route: 030
  21. OXYGEN. [Concomitant]
     Active Substance: OXYGEN
     Indication: CHRONIC OBSTRUCTIVE PULMONARY DISEASE
     Dosage: PRN (STARTED 8 YEARS AGO)
     Route: 045
     Dates: end: 20190709

REACTIONS (29)
  - Sputum retention [Unknown]
  - Erythema [Unknown]
  - Nasal congestion [Unknown]
  - Speech disorder [Unknown]
  - Bronchial obstruction [Recovered/Resolved]
  - Fall [Recovered/Resolved]
  - Dyspnoea [Unknown]
  - Expired product administered [Not Recovered/Not Resolved]
  - Depression [Unknown]
  - Agitation [Unknown]
  - Mobility decreased [Unknown]
  - Malaise [Unknown]
  - Weight decreased [Unknown]
  - Death [Fatal]
  - Embolism [Unknown]
  - Arrhythmia [Not Recovered/Not Resolved]
  - Gait disturbance [Unknown]
  - Productive cough [Unknown]
  - Chronic obstructive pulmonary disease [Unknown]
  - Musculoskeletal discomfort [Unknown]
  - Asthenia [Unknown]
  - Wrong technique in product usage process [Unknown]
  - Femur fracture [Not Recovered/Not Resolved]
  - Injection site haemorrhage [Unknown]
  - Skin atrophy [Unknown]
  - Contusion [Unknown]
  - Cerebral ischaemia [Not Recovered/Not Resolved]
  - Fatigue [Unknown]
  - Nasopharyngitis [Unknown]

NARRATIVE: CASE EVENT DATE: 2013
